FAERS Safety Report 15814082 (Version 1)
Quarter: 2019Q1

REPORT INFORMATION
  Report Type: Spontaneous
  Country: US (occurrence: US)
  Receive Date: 20190111
  Receipt Date: 20190111
  Transmission Date: 20190417
  Serious: No
  Sender: FDA-Public Use
  Company Number: US-JAZZ-2012-691

PATIENT
  Sex: Female
  Weight: 43.84 kg

DRUGS (12)
  1. PRIALT [Suspect]
     Active Substance: ZICONOTIDE ACETATE
     Dosage: 0.09  MCG, ONCE/HOUR
     Route: 037
  2. PRIALT [Suspect]
     Active Substance: ZICONOTIDE ACETATE
     Dosage: 0.08 MCG, SINGLE BOLUS
     Route: 037
  3. FENTANYL. [Suspect]
     Active Substance: FENTANYL
     Dosage: 17.45 MCG, ONCE/HOUR
     Route: 037
  4. SUFENTANIL CITRATE. [Suspect]
     Active Substance: SUFENTANIL CITRATE
     Indication: PAIN
     Dosage: UNK MCG, ONCE/HOUR
     Route: 037
  5. CLONIDINE. [Suspect]
     Active Substance: CLONIDINE
     Indication: PAIN
     Dosage: UNK, MCG, ONCE/HOUR
     Route: 037
  6. CLONIDINE. [Suspect]
     Active Substance: CLONIDINE
     Dosage: 3.23 MCG, ONCE/HOUR
     Route: 037
  7. CLONIDINE. [Suspect]
     Active Substance: CLONIDINE
     Dosage: 5.54 UNK, UNK
     Route: 037
  8. PRIALT [Suspect]
     Active Substance: ZICONOTIDE ACETATE
     Indication: PAIN
     Dosage: UNK MCG, ONCE/HOUR
     Route: 037
     Dates: start: 20111213, end: 20121023
  9. PRIALT [Suspect]
     Active Substance: ZICONOTIDE ACETATE
     Dosage: UNK MCG, ONCE/HOUR
     Route: 037
     Dates: start: 20121023
  10. FENTANYL. [Suspect]
     Active Substance: FENTANYL
     Indication: PAIN
     Dosage: UNK MCG, ONCE/HOUR
     Route: 037
  11. BUPIVACAINE. [Suspect]
     Active Substance: BUPIVACAINE
     Indication: PRODUCT USED FOR UNKNOWN INDICATION
     Dosage: 94.9 ?G, QH
     Route: 037
  12. PRIALT [Suspect]
     Active Substance: ZICONOTIDE ACETATE
     Dosage: 0.15 ?G, QH
     Route: 037

REACTIONS (7)
  - Neck pain [Unknown]
  - Drug withdrawal syndrome [Unknown]
  - Burning sensation [Unknown]
  - Aphasia [Unknown]
  - Memory impairment [Recovered/Resolved]
  - Balance disorder [Unknown]
  - Diarrhoea [Unknown]
